FAERS Safety Report 16511165 (Version 5)
Quarter: 2019Q3

REPORT INFORMATION
  Report Type: Spontaneous
  Country: US (occurrence: US)
  Receive Date: 20190702
  Receipt Date: 20190821
  Transmission Date: 20191004
  Serious: Yes (Hospitalization)
  Sender: FDA-Public Use
  Company Number: PHEH2019US027257

PATIENT
  Sex: Male

DRUGS (2)
  1. LENVATINIB [Suspect]
     Active Substance: LENVATINIB
     Indication: RENAL CANCER
     Dosage: 18 MG, QD
     Route: 048
     Dates: start: 20190501
  2. AFINITOR [Suspect]
     Active Substance: EVEROLIMUS
     Indication: RENAL CANCER
     Dosage: 5 MG, QD
     Route: 048
     Dates: start: 20190423

REACTIONS (15)
  - Abdominal discomfort [Recovered/Resolved]
  - Abdominal pain upper [Unknown]
  - Oral pain [Unknown]
  - Rash [Unknown]
  - Dyspnoea [Unknown]
  - Dysgeusia [Unknown]
  - Vomiting [Recovering/Resolving]
  - Weight decreased [Unknown]
  - Diarrhoea [Unknown]
  - Nasal dryness [Unknown]
  - Emotional disorder [Unknown]
  - Hypertrophy of tongue papillae [Unknown]
  - Decreased appetite [Unknown]
  - Headache [Recovered/Resolved]
  - Dry skin [Unknown]
